FAERS Safety Report 11715805 (Version 2)
Quarter: 2015Q4

REPORT INFORMATION
  Report Type: Spontaneous
  Country: US (occurrence: US)
  Receive Date: 20151104
  Receipt Date: 20151110
  Transmission Date: 20160304
  Serious: No
  Sender: FDA-Public Use
  Company Number: US-ELI_LILLY_AND_COMPANY-US201105006829

PATIENT
  Age: 56 Year
  Sex: Female

DRUGS (2)
  1. FORTEO [Suspect]
     Active Substance: TERIPARATIDE
     Indication: OSTEOPOROSIS
     Dosage: 20 UG, QD
     Route: 065
     Dates: start: 20110518
  2. FORTEO [Suspect]
     Active Substance: TERIPARATIDE
     Dosage: 20 UG, QD
     Route: 065

REACTIONS (31)
  - Groin pain [Recovered/Resolved]
  - Injection site discolouration [Unknown]
  - Malaise [Unknown]
  - Eye pain [Recovering/Resolving]
  - Abdominal discomfort [Unknown]
  - Musculoskeletal chest pain [Unknown]
  - Dizziness [Not Recovered/Not Resolved]
  - Injection site erythema [Recovered/Resolved]
  - Anxiety [Unknown]
  - Injection site bruising [Unknown]
  - Hunger [Unknown]
  - Migraine [Unknown]
  - Gastrointestinal disorder [Unknown]
  - Medication error [Recovered/Resolved]
  - Nervousness [Not Recovered/Not Resolved]
  - Feeling abnormal [Not Recovered/Not Resolved]
  - Injection site pain [Unknown]
  - Headache [Unknown]
  - Thrombosis [Unknown]
  - Rib deformity [Unknown]
  - Injection site haemorrhage [Recovered/Resolved]
  - Musculoskeletal stiffness [Unknown]
  - Arthralgia [Recovered/Resolved]
  - Erythema [Recovered/Resolved]
  - Asthenia [Not Recovered/Not Resolved]
  - Injection site erythema [Not Recovered/Not Resolved]
  - Injection site vesicles [Unknown]
  - Pain [Unknown]
  - Nausea [Unknown]
  - Stress [Unknown]
  - Drug dose omission [Recovered/Resolved]

NARRATIVE: CASE EVENT DATE: 20110518
